FAERS Safety Report 12156103 (Version 1)
Quarter: 2016Q1

REPORT INFORMATION
  Report Type: Spontaneous
  Country: BR (occurrence: BR)
  Receive Date: 20160307
  Receipt Date: 20160307
  Transmission Date: 20160526
  Serious: Yes (Other)
  Sender: FDA-Public Use
  Company Number: BR-ELI_LILLY_AND_COMPANY-BR201603000163

PATIENT
  Sex: Female

DRUGS (3)
  1. HUMULIN N [Suspect]
     Active Substance: INSULIN HUMAN
     Indication: DIABETES MELLITUS
     Dosage: 40 IU, EACH MORNING
     Route: 065
     Dates: start: 1991
  2. HUMULIN N [Suspect]
     Active Substance: INSULIN HUMAN
     Dosage: 20 IU, EACH EVENING
     Route: 065
     Dates: start: 1991
  3. METFORMIN [Concomitant]
     Active Substance: METFORMIN HYDROCHLORIDE
     Dosage: UNK, UNKNOWN
     Route: 065

REACTIONS (15)
  - Diabetic neuropathy [Not Recovered/Not Resolved]
  - Skin discolouration [Not Recovered/Not Resolved]
  - Panic disorder [Unknown]
  - Osteoarthritis [Unknown]
  - Tremor [Unknown]
  - Drug administered at inappropriate site [Not Recovered/Not Resolved]
  - Depression [Unknown]
  - Sleep disorder [Unknown]
  - Gait disturbance [Not Recovered/Not Resolved]
  - Diabetes mellitus [Unknown]
  - Fear [Unknown]
  - Weight increased [Not Recovered/Not Resolved]
  - Decreased appetite [Not Recovered/Not Resolved]
  - Injection site bruising [Not Recovered/Not Resolved]
  - Hypoglycaemia [Unknown]

NARRATIVE: CASE EVENT DATE: 2015
